FAERS Safety Report 9725989 (Version 3)
Quarter: 2014Q1

REPORT INFORMATION
  Report Type: Spontaneous
  Country: GR (occurrence: GR)
  Receive Date: 20131203
  Receipt Date: 20140101
  Transmission Date: 20141002
  Serious: Yes (Death, Life-Threatening, Hospitalization, Other)
  Sender: FDA-Public Use
  Company Number: GR-009507513-1311GRC012958

PATIENT
  Age: 62 Year
  Sex: Female
  Weight: 129 kg

DRUGS (6)
  1. REBETOL [Suspect]
     Indication: CHRONIC HEPATITIS C
     Dosage: UNK
     Route: 048
     Dates: end: 20131029
  2. REBETOL [Suspect]
     Dosage: UNK
     Route: 048
     Dates: start: 20131015
  3. REBETOL [Suspect]
     Dosage: UNK
     Route: 048
     Dates: start: 20111101, end: 20130321
  4. PEGINTRON [Suspect]
     Indication: CHRONIC HEPATITIS C
     Dosage: 150 MICROGRAM, QW
     Route: 058
     Dates: start: 20131009
  5. PEGINTRON [Suspect]
     Dosage: 150 MICROGRAM, QW
     Route: 058
     Dates: start: 20131015
  6. PEGINTRON [Suspect]
     Dosage: 150 MG/ML
     Dates: start: 20111101, end: 20130321

REACTIONS (5)
  - Rhabdomyolysis [Fatal]
  - Atrial fibrillation [Fatal]
  - Septic shock [Fatal]
  - Multi-organ failure [Fatal]
  - No therapeutic response [Unknown]
